FAERS Safety Report 23227506 (Version 4)
Quarter: 2025Q1

REPORT INFORMATION
  Report Type: Spontaneous
  Country: BR (occurrence: BR)
  Receive Date: 20231124
  Receipt Date: 20250220
  Transmission Date: 20250408
  Serious: Yes (Other)
  Sender: SANDOZ
  Company Number: BR-002147023-NVSC2023BR192284

PATIENT
  Sex: Female

DRUGS (7)
  1. FULVESTRANT [Suspect]
     Active Substance: FULVESTRANT
     Indication: Product used for unknown indication
     Route: 065
  2. KISQALI [Suspect]
     Active Substance: RIBOCICLIB
     Indication: Breast cancer
     Route: 065
  3. KISQALI [Suspect]
     Active Substance: RIBOCICLIB
     Route: 065
  4. KISQALI [Suspect]
     Active Substance: RIBOCICLIB
     Route: 065
     Dates: start: 202306
  5. KISQALI [Suspect]
     Active Substance: RIBOCICLIB
     Route: 065
     Dates: start: 202306
  6. KISQALI [Suspect]
     Active Substance: RIBOCICLIB
     Route: 065
     Dates: start: 20230624
  7. ZOLEDRONIC ACID [Suspect]
     Active Substance: ZOLEDRONIC ACID
     Indication: Product used for unknown indication
     Route: 065

REACTIONS (21)
  - Ocular vascular disorder [Recovered/Resolved]
  - Ocular vascular disorder [Recovered/Resolved]
  - Ocular vascular disorder [Recovering/Resolving]
  - Metastases to bone [Unknown]
  - Breast cancer [Unknown]
  - Ascites [Unknown]
  - Osteonecrosis of jaw [Unknown]
  - Rash macular [Unknown]
  - Bone loss [Unknown]
  - Tooth infection [Unknown]
  - Pulpitis dental [Unknown]
  - Decreased immune responsiveness [Unknown]
  - Effusion [Unknown]
  - Tumour marker increased [Unknown]
  - Gastrointestinal wall thickening [Unknown]
  - Peritoneal thickening [Unknown]
  - Constipation [Unknown]
  - Pruritus [Unknown]
  - Flushing [Unknown]
  - Gingivitis [Unknown]
  - Product dose omission issue [Unknown]

NARRATIVE: CASE EVENT DATE: 20230101
